FAERS Safety Report 7987656-1 (Version None)
Quarter: 2011Q4

REPORT INFORMATION
  Report Type: 
  Country: None (occurrence: None)
  Receive Date: 20111216
  Receipt Date: 20111208
  Transmission Date: 20120403
  Serious: Yes (Other)
  Sender: FDA-Public Use
  Company Number: US-BAYER-200940620NA

PATIENT
  Age: 65 Year
  Sex: Female
  Weight: 123 kg

DRUGS (27)
  1. TRASYLOL [Suspect]
     Dosage: 0.5 ML/HOUR PERFUSION DOSE
     Route: 042
     Dates: start: 20070215, end: 20070215
  2. SULFOTRIM [SULFAMETHOXAZOLE,TRIMETHOPRIM] [Concomitant]
     Dosage: 800/160
     Route: 048
     Dates: start: 20061109
  3. MILRINONE [Concomitant]
     Dosage: UNK
     Route: 042
     Dates: start: 20070215
  4. MUCOMYST [Concomitant]
     Dosage: 600 MG, BID
     Route: 042
     Dates: start: 20070209
  5. FUROSEMIDE [Concomitant]
     Dosage: 20 MG
     Route: 048
  6. METRONIDAZOLE [Concomitant]
     Dosage: 500 MG
  7. PIROXICAM [Concomitant]
  8. ZOFRAN [Concomitant]
     Dosage: AS NEEDED
     Route: 042
     Dates: start: 20070209
  9. BENADRYL [Concomitant]
  10. AMIODARONE HCL [Concomitant]
     Dosage: UNK
     Route: 042
     Dates: start: 20070215
  11. POTASSIUM CHLORIDE [Concomitant]
     Dosage: UNK
     Route: 048
     Dates: start: 20061109
  12. ACETYLSALICYLIC ACID SRT [Concomitant]
  13. INSULIN [Concomitant]
     Route: 058
  14. MOBIC [Concomitant]
     Dosage: 15MG
     Route: 048
  15. REGLAN [Concomitant]
     Dosage: UNK
     Route: 042
     Dates: start: 20070209
  16. FRESH FROZEN PLASMA [Concomitant]
     Dosage: 2 U, ONCE
     Route: 042
     Dates: start: 20070215
  17. PLAVIX [Concomitant]
     Dosage: 75 MG, ONCE
     Route: 048
     Dates: start: 20070210
  18. ATORVASTATIN [Concomitant]
     Dosage: 40 MG, ONCE
     Route: 048
     Dates: start: 20070209, end: 20070211
  19. HYDROCODONE BITARTRATE [Concomitant]
     Dosage: 7.5MG/750
     Route: 048
     Dates: start: 20060612
  20. PROTAMINE SULFATE [Concomitant]
  21. TRASYLOL [Suspect]
     Indication: CORONARY ARTERY BYPASS
     Dosage: 1 ML, INTIAL DOSE
     Route: 042
     Dates: start: 20070215, end: 20070215
  22. CEPHALEXIN [Concomitant]
     Dosage: 500 MG
     Route: 048
  23. CARISOPRODOL [Concomitant]
  24. PAVULON [Concomitant]
  25. TRASYLOL [Suspect]
     Dosage: 2 MILLION UNITS IN HALF AN HOUR
     Route: 042
     Dates: start: 20070215, end: 20070215
  26. RED BLOOD CELLS [Concomitant]
     Dosage: 4 U, ONCE
     Route: 042
     Dates: start: 20070215
  27. HYDROCHLOROTHIAZIDE [Concomitant]
     Dosage: 50 MG
     Route: 048
     Dates: start: 20030810

REACTIONS (12)
  - STRESS [None]
  - RENAL IMPAIRMENT [None]
  - ANXIETY [None]
  - PAIN [None]
  - ANHEDONIA [None]
  - UNEVALUABLE EVENT [None]
  - RENAL FAILURE [None]
  - EMOTIONAL DISTRESS [None]
  - FEAR [None]
  - RENAL INJURY [None]
  - INJURY [None]
  - PSYCHOLOGICAL TRAUMA [None]
